FAERS Safety Report 13556960 (Version 1)
Quarter: 2017Q2

REPORT INFORMATION
  Report Type: Report from Study
  Country: US (occurrence: US)
  Receive Date: 20170517
  Receipt Date: 20170517
  Transmission Date: 20170830
  Serious: No
  Sender: FDA-Public Use
  Company Number: US-ACADIA PHARMACEUTICALS INC.-ACA-2017-002658

PATIENT
  Age: 81 Year
  Sex: Male
  Weight: 61.22 kg

DRUGS (4)
  1. GINKOBA [Concomitant]
     Active Substance: GINKGO
     Indication: NUTRITIONAL SUPPLEMENTATION
  2. ASPIRIN. [Concomitant]
     Active Substance: ASPIRIN
     Indication: PRODUCT USED FOR UNKNOWN INDICATION
     Dosage: 81 MG, UNK
  3. NUPLAZID [Suspect]
     Active Substance: PIMAVANSERIN TARTRATE
     Indication: SLEEP DISORDER
     Dosage: 34 MG, QD
     Route: 048
     Dates: start: 20170313
  4. GLUCOSAMINE [Concomitant]
     Active Substance: GLUCOSAMINE
     Indication: SUPPLEMENTATION THERAPY

REACTIONS (2)
  - Abdominal discomfort [Unknown]
  - Off label use [Unknown]

NARRATIVE: CASE EVENT DATE: 201703
